FAERS Safety Report 16675362 (Version 5)
Quarter: 2021Q1

REPORT INFORMATION
  Report Type: Other
  Country: US (occurrence: US)
  Receive Date: 20190806
  Receipt Date: 20210115
  Transmission Date: 20210419
  Serious: Yes (Hospitalization)
  Sender: FDA-Public Use
  Company Number: US-ROCHE-2366453

PATIENT
  Sex: Male

DRUGS (2)
  1. CELLCEPT [Suspect]
     Active Substance: MYCOPHENOLATE MOFETIL\MYCOPHENOLATE MOFETIL HYDROCHLORIDE
     Indication: POLYMYOSITIS
     Dosage: 2 TABLETS
     Route: 065
  2. CELLCEPT [Suspect]
     Active Substance: MYCOPHENOLATE MOFETIL\MYCOPHENOLATE MOFETIL HYDROCHLORIDE
     Route: 048

REACTIONS (8)
  - Nephrolithiasis [Unknown]
  - Bacterial infection [Unknown]
  - Intentional product use issue [Unknown]
  - Off label use [Unknown]
  - Back injury [Unknown]
  - Fall [Unknown]
  - Spinal fracture [Unknown]
  - Disease recurrence [Unknown]
